FAERS Safety Report 8825549 (Version 1)
Quarter: 2012Q4

REPORT INFORMATION
  Report Type: 
  Country: US (occurrence: US)
  Receive Date: 20121004
  Receipt Date: 20121004
  Transmission Date: 20130627
  Serious: No
  Sender: FDA-Public Use
  Company Number: US-BAYER-2012-099943

PATIENT
  Age: 38 Year
  Sex: Female

DRUGS (2)
  1. FINACEA [Suspect]
     Indication: ROSACEA
     Dosage: UNK
     Route: 061
     Dates: start: 2009
  2. FINACEA [Suspect]
     Indication: ROSACEA
     Dosage: UNK
     Route: 061
     Dates: start: 20120921

REACTIONS (2)
  - Burning sensation [None]
  - Eye irritation [None]
